FAERS Safety Report 9393064 (Version 3)
Quarter: 2013Q4

REPORT INFORMATION
  Report Type: Spontaneous
  Country: FR (occurrence: FR)
  Receive Date: 20130710
  Receipt Date: 20131018
  Transmission Date: 20140711
  Serious: Yes (Hospitalization, Other)
  Sender: FDA-Public Use
  Company Number: FR-ASTRAZENECA-2013SE50062

PATIENT
  Age: 13567 Day
  Sex: Female

DRUGS (2)
  1. XYLOCAINE [Suspect]
     Indication: HYPOAESTHESIA ORAL
     Route: 004
     Dates: start: 20130622, end: 20130622
  2. ARTICAINE (NON AZ DRUG) [Suspect]
     Indication: HYPOAESTHESIA ORAL
     Route: 004

REACTIONS (7)
  - Chest discomfort [Recovered/Resolved]
  - Malaise [Recovered/Resolved]
  - Loss of consciousness [Recovered/Resolved]
  - Dizziness [Recovered/Resolved]
  - Dyspnoea [Recovered/Resolved]
  - Paraesthesia [Unknown]
  - Feeling hot [Unknown]
